FAERS Safety Report 9878550 (Version 1)
Quarter: 2014Q1

REPORT INFORMATION
  Report Type: Spontaneous
  Country: CA (occurrence: CA)
  Receive Date: 20140206
  Receipt Date: 20140206
  Transmission Date: 20141002
  Serious: Yes (Death)
  Sender: FDA-Public Use
  Company Number: CA-B.I. PHARMACEUTICALS,INC./RIDGEFIELD-2014-BI-05310CN

PATIENT
  Age: 65 Year
  Sex: Male
  Weight: 91 kg

DRUGS (8)
  1. PRADAXA [Suspect]
     Indication: PRODUCT USED FOR UNKNOWN INDICATION
     Dosage: 300 MG
     Route: 048
  2. ATORVASTATIN [Concomitant]
  3. CIPRALEX [Concomitant]
  4. DILTIAZEM [Concomitant]
  5. METOPROLOL [Concomitant]
  6. NAPROXEN [Concomitant]
  7. SALBUTAMOL [Concomitant]
  8. TYLENOL WITH CODEINE [Concomitant]

REACTIONS (2)
  - Activated partial thromboplastin time prolonged [Fatal]
  - Haemorrhage intracranial [Fatal]
